FAERS Safety Report 7042193-6 (Version None)
Quarter: 2010Q4

REPORT INFORMATION
  Report Type: 
  Country: None (occurrence: None)
  Receive Date: 20101013
  Receipt Date: 20101007
  Transmission Date: 20110411
  Serious: Yes (Other)
  Sender: FDA-Public Use
  Company Number: GB-AMGEN-QUU443736

PATIENT

DRUGS (2)
  1. NEUPOGEN [Suspect]
     Indication: NEUTROPENIA
  2. PENICILLIN-V [Concomitant]

REACTIONS (2)
  - ADVERSE REACTION [None]
  - INTERSTITIAL LUNG DISEASE [None]
